FAERS Safety Report 19680916 (Version 4)
Quarter: 2022Q3

REPORT INFORMATION
  Report Type: Report from Study
  Country: BG (occurrence: BG)
  Receive Date: 20210810
  Receipt Date: 20220706
  Transmission Date: 20221027
  Serious: Yes (Hospitalization)
  Sender: FDA-Public Use
  Company Number: BG-ROCHE-2766715

PATIENT
  Age: 75 Year
  Sex: Female
  Weight: 68 kg

DRUGS (8)
  1. TRASTUZUMAB [Suspect]
     Active Substance: TRASTUZUMAB
     Indication: Breast cancer
     Dosage: MOST RECENT DOSE PRIOR TO THE EVENT: 29/NOV/2018
     Route: 042
     Dates: start: 20181102, end: 20181102
  2. TRASTUZUMAB [Suspect]
     Active Substance: TRASTUZUMAB
     Indication: HER2 positive breast cancer
  3. DOCETAXEL [Suspect]
     Active Substance: DOCETAXEL
     Indication: HER2 positive breast cancer
     Dosage: MOST RECENT DOSE PRIOR TO THE EVENT: 29/NOV/2018, 04/OCT/2019
     Route: 042
     Dates: start: 20181102
  4. PROPRANOLOL [Concomitant]
     Active Substance: PROPRANOLOL HYDROCHLORIDE
     Indication: Tremor
     Dosage: UNK (ONGOING = CHECKED)
     Route: 065
     Dates: start: 20201002
  5. CLOBEDERM [Concomitant]
     Indication: Neurodermatitis
     Dosage: UNK (ONGOING = CHECKED)
     Route: 065
     Dates: start: 20200328
  6. ATARAX [Concomitant]
     Active Substance: HYDROXYZINE HYDROCHLORIDE
     Indication: Neurodermatitis
     Dosage: UNK (ONGOING = CHECKED)
     Route: 065
     Dates: start: 20200310
  7. ENALAPRIL MALEATE [Concomitant]
     Active Substance: ENALAPRIL MALEATE
     Dosage: UNK (ONGOING = CHECKED)
     Route: 065
     Dates: start: 20120615
  8. EBASTINE [Concomitant]
     Active Substance: EBASTINE
     Indication: Neurodermatitis
     Dosage: UNK (ONGOING = CHECKED)
     Route: 065
     Dates: start: 20200328

REACTIONS (1)
  - Femoral neck fracture [Recovered/Resolved with Sequelae]

NARRATIVE: CASE EVENT DATE: 20201227
